FAERS Safety Report 5046092-0 (Version None)
Quarter: 2006Q3

REPORT INFORMATION
  Report Type: 
  Country: None (occurrence: None)
  Receive Date: 20060707
  Receipt Date: 20060707
  Transmission Date: 20061208
  Serious: Yes (Hospitalization)
  Sender: FDA-Public Use
  Company Number: None

PATIENT
  Sex: Female
  Weight: 135 kg

DRUGS (2)
  1. CISPLATIN [Suspect]
     Dosage: 50MG/M2 IV DAY 2 CYCLES REPEATED EVERY 3 WEEKS X6
     Route: 042
  2. TAXOL [Suspect]
     Dosage: 135 MG/M2 IV OVER 24 HOURS

REACTIONS (4)
  - CHILLS [None]
  - DYSPNOEA [None]
  - OXYGEN SATURATION DECREASED [None]
  - PYREXIA [None]
